FAERS Safety Report 8286561-3 (Version None)
Quarter: 2012Q2

REPORT INFORMATION
  Report Type: 
  Country: None (occurrence: None)
  Receive Date: 20120411
  Receipt Date: 20120327
  Transmission Date: 20120825
  Serious: Yes (Life-Threatening, Hospitalization)
  Sender: FDA-Public Use
  Company Number: 12-271

PATIENT
  Age: 23 Year
  Sex: Female

DRUGS (3)
  1. ACETAMINOPHEN [Suspect]
  2. CLARITHROMYCIN [Suspect]
  3. IBUPROFEN [Suspect]

REACTIONS (31)
  - OEDEMA [None]
  - ALTERED STATE OF CONSCIOUSNESS [None]
  - PLEURAL EFFUSION [None]
  - ANAEMIA [None]
  - TONGUE DISCOLOURATION [None]
  - HAEMORRHAGIC DIATHESIS [None]
  - NO THERAPEUTIC RESPONSE [None]
  - ENCEPHALOPATHY [None]
  - INTERNATIONAL NORMALISED RATIO INCREASED [None]
  - HYPOXIA [None]
  - LYMPHADENOPATHY [None]
  - EXTRACORPOREAL CIRCULATION [None]
  - PYREXIA [None]
  - PURPURA [None]
  - ENDOTRACHEAL INTUBATION [None]
  - LOSS OF CONSCIOUSNESS [None]
  - GENERAL PHYSICAL HEALTH DETERIORATION [None]
  - JAUNDICE [None]
  - PETECHIAE [None]
  - DERMATITIS EXFOLIATIVE [None]
  - TRANSFUSION-RELATED ACUTE LUNG INJURY [None]
  - CHEILITIS [None]
  - OCULAR ICTERUS [None]
  - HEPATOSPLENOMEGALY [None]
  - ORAL MUCOSAL DISCOLOURATION [None]
  - ACUTE HEPATIC FAILURE [None]
  - RESPIRATORY FAILURE [None]
  - PULMONARY OEDEMA [None]
  - PNEUMONITIS [None]
  - ACUTE RESPIRATORY DISTRESS SYNDROME [None]
  - SKIN LESION [None]
